FAERS Safety Report 6152059-1 (Version None)
Quarter: 2009Q2

REPORT INFORMATION
  Report Type: 
  Country: None (occurrence: None)
  Receive Date: 20090409
  Receipt Date: 20090409
  Transmission Date: 20091009
  Serious: Yes (Hospitalization)
  Sender: FDA-Public Use
  Company Number: None

PATIENT
  Sex: Female
  Weight: 71.64 kg

DRUGS (1)
  1. ENBREL [Suspect]
     Dosage: SUBCUTANEOUS
     Route: 058
     Dates: start: 20090303, end: 20090331

REACTIONS (1)
  - LUPUS-LIKE SYNDROME [None]
